FAERS Safety Report 13429824 (Version 1)
Quarter: 2017Q2

REPORT INFORMATION
  Report Type: Spontaneous
  Country: US (occurrence: US)
  Receive Date: 20170412
  Receipt Date: 20170412
  Transmission Date: 20170830
  Serious: No
  Sender: FDA-Public Use
  Company Number: US-CELGENEUS-USA-20170400476

PATIENT
  Sex: Female
  Weight: 149.82 kg

DRUGS (1)
  1. REVLIMID [Suspect]
     Active Substance: LENALIDOMIDE
     Indication: PLASMA CELL MYELOMA
     Dosage: 25 MILLIGRAM
     Route: 048
     Dates: start: 201703

REACTIONS (6)
  - Nausea [Unknown]
  - Dizziness [Unknown]
  - Headache [Unknown]
  - Drug dose omission [Unknown]
  - Pain [Unknown]
  - Fatigue [Unknown]
